FAERS Safety Report 7627667-9 (Version None)
Quarter: 2011Q3

REPORT INFORMATION
  Report Type: 
  Country: None (occurrence: None)
  Receive Date: 20110721
  Receipt Date: 20110715
  Transmission Date: 20111222
  Serious: Yes (Life-Threatening, Hospitalization, Other)
  Sender: FDA-Public Use
  Company Number: GB-SANOFI-AVENTIS-2011SA038138

PATIENT
  Age: 45 Year
  Sex: Female
  Weight: 64 kg

DRUGS (3)
  1. ETANERCEPT [Concomitant]
     Route: 058
     Dates: start: 20080101
  2. LEFLUNOMIDE [Suspect]
     Route: 048
     Dates: start: 20110301, end: 20110411
  3. LEFLUNOMIDE [Suspect]
     Route: 048
     Dates: start: 20101115, end: 20110301

REACTIONS (5)
  - LUNG INFILTRATION [None]
  - ACUTE RESPIRATORY DISTRESS SYNDROME [None]
  - PNEUMONITIS [None]
  - RESPIRATORY FAILURE [None]
  - PULMONARY TOXICITY [None]
